FAERS Safety Report 20919602 (Version 3)
Quarter: 2022Q3

REPORT INFORMATION
  Report Type: Spontaneous
  Country: US (occurrence: US)
  Receive Date: 20220606
  Receipt Date: 20220815
  Transmission Date: 20221026
  Serious: No
  Sender: FDA-Public Use
  Company Number: US-PFIZER INC-202200793579

PATIENT
  Age: 67 Year
  Sex: Female
  Weight: 44.91 kg

DRUGS (1)
  1. BOSULIF [Suspect]
     Active Substance: BOSUTINIB MONOHYDRATE
     Indication: Leukaemia
     Dosage: 400MG WITH FOOD, ONCE A DAY
     Route: 048
     Dates: start: 20220419

REACTIONS (3)
  - Urticaria [Recovering/Resolving]
  - Rash [Recovering/Resolving]
  - Pruritus [Not Recovered/Not Resolved]

NARRATIVE: CASE EVENT DATE: 20220529
